FAERS Safety Report 17008227 (Version 1)
Quarter: 2019Q4

REPORT INFORMATION
  Report Type: Spontaneous
  Country: US (occurrence: US)
  Receive Date: 20190927
  Receipt Date: 20190927
  Transmission Date: 20200122
  Serious: No
  Sender: FDA-Public Use
  Company Number: None

PATIENT
  Sex: Female

DRUGS (1)
  1. LUPRON DEPOT-PED [Suspect]
     Active Substance: LEUPROLIDE ACETATE
     Indication: HYPERPITUITARISM
     Dosage: ?          OTHER DOSE:15;OTHER FREQUENCY:30 DAYS;OTHER ROUTE:IM?
     Route: 030
     Dates: start: 20181016, end: 20190802

REACTIONS (2)
  - Adverse drug reaction [None]
  - Therapy cessation [None]
